FAERS Safety Report 5708985-8 (Version None)
Quarter: 2008Q2

REPORT INFORMATION
  Report Type: 
  Country: None (occurrence: None)
  Receive Date: 20080414
  Receipt Date: 20080414
  Transmission Date: 20081010
  Serious: Yes (Hospitalization)
  Sender: FDA-Public Use
  Company Number: None

PATIENT
  Sex: Male
  Weight: 77.27 kg

DRUGS (1)
  1. PROLEUKIN [Suspect]

REACTIONS (6)
  - ELECTROLYTE IMBALANCE [None]
  - FLUID RETENTION [None]
  - MUCOSAL INFLAMMATION [None]
  - OLIGURIA [None]
  - PHARYNGOLARYNGEAL PAIN [None]
  - SCROTAL SWELLING [None]
